FAERS Safety Report 5273005-9 (Version None)
Quarter: 2007Q1

REPORT INFORMATION
  Report Type: 
  Country: None (occurrence: None)
  Receive Date: 20070316
  Receipt Date: 20070301
  Transmission Date: 20070707
  Serious: Yes (Hospitalization)
  Sender: FDA-Public Use
  Company Number: 2007-155294-NL

PATIENT
  Age: 76 Year
  Sex: Female

DRUGS (6)
  1. MIRTAZAPINE [Suspect]
     Indication: ANTIDEPRESSANT THERAPY
     Dosage: 30 MG QD
     Route: 048
     Dates: start: 20060801, end: 20061001
  2. ALPRAZOLAM [Concomitant]
  3. FUROSEMIDE [Concomitant]
  4. POTASSIUM CHLORIDE [Concomitant]
  5. CITALOPRAM HYDROBROMIDE [Suspect]
     Dosage: 20 MG QD
     Route: 048
     Dates: start: 20060801, end: 20061001
  6. BISOPROLOL [Concomitant]

REACTIONS (3)
  - CHOLELITHIASIS [None]
  - CHRONIC HEPATITIS [None]
  - CONDITION AGGRAVATED [None]
